FAERS Safety Report 22398143 (Version 2)
Quarter: 2023Q2

REPORT INFORMATION
  Report Type: Spontaneous
  Country: US (occurrence: US)
  Receive Date: 20230602
  Receipt Date: 20230608
  Transmission Date: 20230722
  Serious: Yes (Disabling, Other)
  Sender: FDA-Public Use
  Company Number: US-REGENERON PHARMACEUTICALS, INC.-2023-070394

PATIENT
  Sex: Male

DRUGS (4)
  1. EYLEA [Suspect]
     Active Substance: AFLIBERCEPT
     Indication: Diabetic retinopathy
     Dosage: 2 MG, IN BOTH EYES, FORMULATION: GERRESHEIMER PFS
     Dates: start: 20220615
  2. EYLEA [Suspect]
     Active Substance: AFLIBERCEPT
     Dosage: 2 MG, IN BOTH EYES, FORMULATION: GERRESHEIMER PFS
     Dates: start: 20230222, end: 20230222
  3. EYLEA [Suspect]
     Active Substance: AFLIBERCEPT
     Dosage: 2 MG, IN RIGHT EYE, FORMULATION: GERRESHEIMER PFS
     Dates: start: 20230517, end: 20230517
  4. EYLEA [Suspect]
     Active Substance: AFLIBERCEPT
     Dosage: 2 MG, IN LEFT EYE, FORMULATION: GERRESHEIMER
     Dates: start: 20230517, end: 20230517

REACTIONS (2)
  - Blindness unilateral [Recovering/Resolving]
  - Non-infectious endophthalmitis [Recovering/Resolving]

NARRATIVE: CASE EVENT DATE: 20230521
